FAERS Safety Report 4629979-X (Version None)
Quarter: 2005Q2

REPORT INFORMATION
  Report Type: 
  Country: None (occurrence: None)
  Receive Date: 20050408
  Receipt Date: 20050125
  Transmission Date: 20051028
  Serious: Yes (Life-Threatening, Hospitalization, Disabling)
  Sender: FDA-Public Use
  Company Number: DE-MERCK-0501DEU00245

PATIENT
  Age: 65 Year
  Sex: Female
  Weight: 88 kg

DRUGS (5)
  1. VIOXX [Suspect]
     Indication: BONE PAIN
     Route: 048
     Dates: start: 20010401
  2. VIOXX [Suspect]
     Indication: MUSCULOSKELETAL PAIN
     Route: 048
     Dates: start: 20010401
  3. CYANOCOBALAMIN AND FOLIC ACID AND PYRIDOXINE HYDROCHLORIDE [Concomitant]
     Indication: BLOOD HOMOCYSTEINE ABNORMAL
     Route: 065
  4. PIRETANIDE [Concomitant]
     Indication: HYPERTENSION
     Route: 065
  5. PRAVASTATIN SODIUM [Concomitant]
     Indication: HYPERCHOLESTEROLAEMIA
     Route: 065

REACTIONS (15)
  - ABDOMINAL DISCOMFORT [None]
  - AORTIC DILATATION [None]
  - CONSTIPATION [None]
  - DEPRESSION [None]
  - DISEASE RECURRENCE [None]
  - GOITRE [None]
  - HEADACHE [None]
  - HEPATIC STEATOSIS [None]
  - INTERVERTEBRAL DISC DISORDER [None]
  - INTERVERTEBRAL DISC OPERATION [None]
  - INTERVERTEBRAL DISC PROTRUSION [None]
  - PANCREAS LIPOMATOSIS [None]
  - PULMONARY EMBOLISM [None]
  - RENAL LIPOMATOSIS [None]
  - SPINAL DISORDER [None]
